FAERS Safety Report 10154135 (Version 1)
Quarter: 2014Q2

REPORT INFORMATION
  Report Type: Spontaneous
  Country: IT (occurrence: None)
  Receive Date: 20140502
  Receipt Date: 20140502
  Transmission Date: 20141212
  Serious: Yes (Hospitalization)
  Sender: FDA-Public Use
  Company Number: B0990087A

PATIENT
  Age: 28 Year
  Sex: Male

DRUGS (1)
  1. NELARABINE [Suspect]
     Indication: T-CELL TYPE ACUTE LEUKAEMIA

REACTIONS (13)
  - Neurotoxicity [None]
  - Hypoaesthesia [None]
  - Gait disturbance [None]
  - CSF protein increased [None]
  - Ataxia [None]
  - Bladder dysfunction [None]
  - Hyperreflexia [None]
  - Muscular weakness [None]
  - Romberg test positive [None]
  - Nerve conduction studies abnormal [None]
  - Nuclear magnetic resonance imaging brain abnormal [None]
  - Somatosensory evoked potentials abnormal [None]
  - Nervous system disorder [None]
